FAERS Safety Report 10202794 (Version 3)
Quarter: 2014Q2

REPORT INFORMATION
  Report Type: Spontaneous
  Country: SE (occurrence: SE)
  Receive Date: 20140528
  Receipt Date: 20140611
  Transmission Date: 20141212
  Serious: Yes (Other)
  Sender: FDA-Public Use
  Company Number: CHPA2014SE007071

PATIENT
  Sex: Female

DRUGS (1)
  1. THERACOUGH [Suspect]

REACTIONS (1)
  - Blood glucose increased [Unknown]
